FAERS Safety Report 5564241-2 (Version None)
Quarter: 2007Q4

REPORT INFORMATION
  Report Type: 
  Country: None (occurrence: None)
  Receive Date: 20071212
  Receipt Date: 20071128
  Transmission Date: 20080405
  Serious: Yes (Hospitalization)
  Sender: FDA-Public Use
  Company Number: TPG2007A00759

PATIENT
  Age: 62 Year
  Sex: Male

DRUGS (1)
  1. ACTOS [Suspect]
     Indication: DIABETES MELLITUS
     Dosage: PER ORAL
     Route: 048

REACTIONS (23)
  - ABDOMINAL PAIN [None]
  - BARREL CHEST [None]
  - BLOOD PRESSURE INADEQUATELY CONTROLLED [None]
  - CARDIAC FAILURE [None]
  - DRY SKIN [None]
  - DYSPNOEA AT REST [None]
  - FATIGUE [None]
  - FREQUENT BOWEL MOVEMENTS [None]
  - GOUT [None]
  - GYNAECOMASTIA [None]
  - HEADACHE [None]
  - HYPERAESTHESIA [None]
  - INSOMNIA [None]
  - JOINT EFFUSION [None]
  - LIPOMATOSIS [None]
  - NEPHROSCLEROSIS [None]
  - OEDEMA PERIPHERAL [None]
  - OSTEOPOROSIS [None]
  - PARONYCHIA [None]
  - PURULENT DISCHARGE [None]
  - RENAL IMPAIRMENT [None]
  - SPINAL COMPRESSION FRACTURE [None]
  - WEIGHT INCREASED [None]
